FAERS Safety Report 5366445-0 (Version None)
Quarter: 2007Q2

REPORT INFORMATION
  Report Type: 
  Country: None (occurrence: None)
  Receive Date: 20070622
  Receipt Date: 20070622
  Transmission Date: 20071010
  Serious: Yes (Other)
  Sender: FDA-Public Use
  Company Number: AU-JNJFOC-20070603541

PATIENT
  Sex: Male

DRUGS (1)
  1. DURAGESIC-100 [Suspect]
     Indication: ACCIDENTAL EXPOSURE
     Route: 062

REACTIONS (3)
  - ACCIDENTAL EXPOSURE [None]
  - DIZZINESS [None]
  - PALPITATIONS [None]
